FAERS Safety Report 9394466 (Version 2)
Quarter: 2013Q3

REPORT INFORMATION
  Report Type: Spontaneous
  Country: US (occurrence: US)
  Receive Date: 20130711
  Receipt Date: 20130717
  Transmission Date: 20140515
  Serious: Yes (Hospitalization)
  Sender: FDA-Public Use
  Company Number: US-PFIZER INC-2013200169

PATIENT
  Sex: Male

DRUGS (1)
  1. XALKORI [Suspect]
     Indication: SQUAMOUS CELL CARCINOMA OF LUNG
     Dosage: 250 MG, 2X/DAY
     Dates: start: 20130615

REACTIONS (2)
  - Lung infection [Unknown]
  - Pneumonitis [Unknown]
